FAERS Safety Report 24153329 (Version 3)
Quarter: 2024Q4

REPORT INFORMATION
  Report Type: Spontaneous
  Country: JP (occurrence: JP)
  Receive Date: 20240730
  Receipt Date: 20241127
  Transmission Date: 20250114
  Serious: Yes (Other)
  Sender: ABBVIE
  Company Number: JP-ABBVIE-5853819

PATIENT
  Age: 47 Year
  Sex: Female

DRUGS (4)
  1. RINVOQ [Suspect]
     Active Substance: UPADACITINIB
     Indication: Rheumatoid arthritis
     Dosage: FORM STRENGTH: 15 MILIGRAM
     Route: 048
     Dates: start: 20211014
  2. HEPARINOID [Concomitant]
     Indication: Palmoplantar pustulosis
  3. DIFLORASONE DIACETATE [Concomitant]
     Active Substance: DIFLORASONE DIACETATE
     Indication: Palmoplantar pustulosis
  4. ALFACALCIDOL [Concomitant]
     Active Substance: ALFACALCIDOL
     Indication: Prophylaxis

REACTIONS (2)
  - Retinal vein occlusion [Recovered/Resolved]
  - Retinal exudates [Recovered/Resolved]

NARRATIVE: CASE EVENT DATE: 20240314
